FAERS Safety Report 24250885 (Version 1)
Quarter: 2024Q3

REPORT INFORMATION
  Report Type: Spontaneous
  Country: US (occurrence: None)
  Receive Date: 20240825
  Receipt Date: 20240825
  Transmission Date: 20241016
  Serious: Yes (Other)
  Sender: Public
  Company Number: None

PATIENT
  Age: 52 Year
  Sex: Female
  Weight: 67.5 kg

DRUGS (6)
  1. ICY HOT [Suspect]
     Active Substance: MENTHOL\METHYL SALICYLATE
     Indication: Myalgia
     Dosage: OTHER STRENGTH : PRO?OTHER QUANTITY : 1 OUNCE(S)?OTHER FREQUENCY : AS NEEDED?
     Route: 061
     Dates: start: 20240702, end: 20240702
  2. Biest compounded hrt [Concomitant]
  3. HYDROCHLOROTHIAZIDE [Concomitant]
     Active Substance: HYDROCHLOROTHIAZIDE
  4. BUPROPION [Concomitant]
     Active Substance: BUPROPION
  5. TIZANIDINE [Concomitant]
     Active Substance: TIZANIDINE
  6. ZOLPIDEM [Concomitant]
     Active Substance: ZOLPIDEM TARTRATE

REACTIONS (2)
  - Blister [None]
  - Chemical burn [None]

NARRATIVE: CASE EVENT DATE: 20240703
